FAERS Safety Report 5444967-1 (Version None)
Quarter: 2007Q3

REPORT INFORMATION
  Report Type: 
  Country: None (occurrence: None)
  Receive Date: 20070906
  Receipt Date: 20070831
  Transmission Date: 20080115
  Serious: Yes (Hospitalization)
  Sender: FDA-Public Use
  Company Number: PHBS2007JP14474

PATIENT
  Age: 43 Year
  Sex: Female
  Weight: 115 kg

DRUGS (2)
  1. TEGRETOL [Suspect]
     Indication: SCHIZOPHRENIA
     Dosage: 100 MG, TID
     Route: 048
  2. RISPERDAL [Suspect]
     Dosage: 6 MG/D

REACTIONS (1)
  - WEIGHT INCREASED [None]
